FAERS Safety Report 22004311 (Version 1)
Quarter: 2023Q1

REPORT INFORMATION
  Report Type: Report from Study
  Country: NL (occurrence: None)
  Receive Date: 20230217
  Receipt Date: 20230217
  Transmission Date: 20230418
  Serious: Yes (Hospitalization)
  Sender: FDA-Public Use
  Company Number: NL-ROCHE-3287108

PATIENT
  Age: 54 Year
  Sex: Male
  Weight: 72 kg

DRUGS (16)
  1. RITUXIMAB [Suspect]
     Active Substance: RITUXIMAB
     Indication: Follicular lymphoma stage III
     Dosage: LAST DOSE OF RITUXIMAB ON 20/JAN/2022 WAS 375 MG/M2(PER PROTOCOL),
     Route: 041
     Dates: start: 20210902, end: 20220120
  2. EPCORITAMAB [Suspect]
     Active Substance: EPCORITAMAB
     Indication: Follicular lymphoma stage III
     Route: 058
     Dates: start: 20210902, end: 20210902
  3. EPCORITAMAB [Suspect]
     Active Substance: EPCORITAMAB
     Dosage: INTERMEDIATE DOSE
     Route: 058
     Dates: start: 20210909, end: 20210909
  4. EPCORITAMAB [Suspect]
     Active Substance: EPCORITAMAB
     Dosage: FULL DOSE, PRIOR TO THE EVENT ONSET, THE PATIENT RECEIVED CYCLE 15 DAY 1 (C15D1) OF EPCORITAMAB ON 2
     Route: 058
     Dates: start: 20210916, end: 20211118
  5. EPCORITAMAB [Suspect]
     Active Substance: EPCORITAMAB
     Route: 058
     Dates: start: 20221207
  6. EPCORITAMAB [Suspect]
     Active Substance: EPCORITAMAB
     Route: 058
     Dates: start: 20211126, end: 20220428
  7. EPCORITAMAB [Suspect]
     Active Substance: EPCORITAMAB
     Dosage: ON 29/SEP/2022,PATIENT RECEIVED CYCLE 15 DAY 1 (C15D1) OF EPCORITAMAB
     Route: 058
     Dates: start: 20220512, end: 20220929
  8. BENDAMUSTINE [Suspect]
     Active Substance: BENDAMUSTINE
     Indication: Follicular lymphoma stage III
     Dosage: HE RECEIVED LAST DOSE OF BENDAMUSTINE AT 90 MG/M2 PER PROTOCOL
     Route: 042
     Dates: start: 20210902, end: 20210903
  9. BENDAMUSTINE [Suspect]
     Active Substance: BENDAMUSTINE
     Dosage: HE RECEIVED LAST DOSE OF BENDAMUSTINE AT 90 MG/M2 PER PROTOCOL
     Route: 042
     Dates: start: 20210930, end: 20211001
  10. BENDAMUSTINE [Suspect]
     Active Substance: BENDAMUSTINE
     Dosage: HE RECEIVED LAST DOSE OF BENDAMUSTINE AT 90 MG/M2 PER PROTOCOL
     Route: 042
     Dates: start: 20211028, end: 20211029
  11. BENDAMUSTINE [Suspect]
     Active Substance: BENDAMUSTINE
     Dosage: HE RECEIVED LAST DOSE OF BENDAMUSTINE AT 90 MG/M2 PER PROTOCOL
     Route: 042
     Dates: start: 20211126, end: 20211127
  12. BENDAMUSTINE [Suspect]
     Active Substance: BENDAMUSTINE
     Dosage: HE RECEIVED LAST DOSE OF BENDAMUSTINE AT 90 MG/M2 PER PROTOCOL
     Route: 042
     Dates: start: 20211223, end: 20211224
  13. BENDAMUSTINE [Suspect]
     Active Substance: BENDAMUSTINE
     Dosage: HE RECEIVED LAST DOSE OF BENDAMUSTINE AT 90 MG/M2 PER PROTOCOL
     Route: 042
     Dates: start: 20220120, end: 20220121
  14. SULFAMETHOXAZOLE\TRIMETHOPRIM [Concomitant]
     Active Substance: SULFAMETHOXAZOLE\TRIMETHOPRIM
     Dates: start: 20210902
  15. SULFAMETHOXAZOLE\TRIMETHOPRIM [Concomitant]
     Active Substance: SULFAMETHOXAZOLE\TRIMETHOPRIM
     Route: 042
     Dates: start: 20221108, end: 20221111
  16. FOLIC ACID [Concomitant]
     Active Substance: FOLIC ACID
     Dates: start: 20210902

REACTIONS (1)
  - COVID-19 pneumonia [Recovered/Resolved]

NARRATIVE: CASE EVENT DATE: 20221021
